FAERS Safety Report 9817103 (Version 3)
Quarter: 2014Q1

REPORT INFORMATION
  Report Type: Spontaneous
  Country: JP (occurrence: JP)
  Receive Date: 20140114
  Receipt Date: 20140326
  Transmission Date: 20141002
  Serious: Yes (Hospitalization)
  Sender: FDA-Public Use
  Company Number: PHJP2014JP000449

PATIENT
  Age: 32 Year
  Sex: Female
  Weight: 59 kg

DRUGS (7)
  1. TEGRETOL TAB 200MG [Suspect]
     Indication: BIPOLAR DISORDER
     Dosage: 100 MG, DAILY
     Route: 048
     Dates: start: 20131122, end: 20131213
  2. TEGRETOL TAB 200MG [Suspect]
     Dosage: 100 MG, BID
     Route: 048
     Dates: start: 20131214, end: 20131225
  3. LIMAS [Concomitant]
     Dosage: 100 MG, BID
     Route: 048
  4. CYMBALTA [Concomitant]
     Dosage: 10 MG, QD
     Route: 048
  5. HALCION [Concomitant]
     Dosage: 0.125 MG, QD
     Route: 048
  6. CONTOMIN [Concomitant]
     Dosage: 12.5 MG, PRN
     Route: 048
  7. ATARAX P [Concomitant]
     Dosage: 2.5 MG, QD
     Route: 048

REACTIONS (6)
  - Liver disorder [Recovered/Resolved]
  - Drug reaction with eosinophilia and systemic symptoms [Recovered/Resolved]
  - Generalised erythema [Recovered/Resolved]
  - Pyrexia [Recovered/Resolved]
  - Oral pain [Unknown]
  - Pruritus [Recovered/Resolved]
